FAERS Safety Report 4474639-1 (Version None)
Quarter: 2004Q4

REPORT INFORMATION
  Report Type: 
  Country: None (occurrence: None)
  Receive Date: 20041012
  Receipt Date: 20040929
  Transmission Date: 20050328
  Serious: Yes (Disabling, Other)
  Sender: FDA-Public Use
  Company Number: 2004236530FR

PATIENT
  Sex: Male

DRUGS (1)
  1. MEDROL [Suspect]
     Dosage: 16 MG, QD, ORAL
     Route: 048
     Dates: end: 20040101

REACTIONS (1)
  - OSTEONECROSIS [None]
